FAERS Safety Report 11401732 (Version 2)
Quarter: 2015Q3

REPORT INFORMATION
  Report Type: Spontaneous
  Country: US (occurrence: US)
  Receive Date: 20150821
  Receipt Date: 20150909
  Transmission Date: 20151125
  Serious: No
  Sender: FDA-Public Use
  Company Number: US-AMGEN-USASP2015039191

PATIENT
  Age: 31 Year
  Sex: Female

DRUGS (7)
  1. CALCIUM WITH VITAMIN D             /00944201/ [Concomitant]
     Active Substance: CALCIUM\VITAMIN D
  2. TOLMETIN [Concomitant]
     Active Substance: TOLMETIN
     Indication: JUVENILE IDIOPATHIC ARTHRITIS
     Dosage: 600 MG THREE TIMS DAILY
     Route: 048
     Dates: start: 20150701
  3. ENBREL [Suspect]
     Active Substance: ETANERCEPT
     Indication: JUVENILE IDIOPATHIC ARTHRITIS
     Dosage: 25 MG, 2 TIMES/WK
     Route: 065
     Dates: start: 20000110, end: 20100601
  4. PRENATAL VITAMINS                  /02014401/ [Concomitant]
     Active Substance: VITAMINS
     Dosage: UNK
  5. ENBREL [Suspect]
     Active Substance: ETANERCEPT
     Dosage: 25 MG, 2 TIMES/WK
     Route: 065
     Dates: start: 20111215
  6. PREDNISONE. [Concomitant]
     Active Substance: PREDNISONE
     Indication: JUVENILE IDIOPATHIC ARTHRITIS
     Dosage: 8 MG, DAILY
     Route: 048
     Dates: start: 20100601
  7. HYDROCODONE/APAP [Concomitant]
     Active Substance: ACETAMINOPHEN\HYDROCODONE BITARTRATE
     Indication: JUVENILE IDIOPATHIC ARTHRITIS
     Dosage: 5 - 500 MG AS NEEDED

REACTIONS (4)
  - Pregnancy [Recovered/Resolved]
  - Induced labour [Recovered/Resolved]
  - Premature delivery [Recovered/Resolved]
  - Premature rupture of membranes [Recovered/Resolved]
